FAERS Safety Report 7391443-5 (Version None)
Quarter: 2011Q2

REPORT INFORMATION
  Report Type: 
  Country: None (occurrence: None)
  Receive Date: 20110404
  Receipt Date: 20110112
  Transmission Date: 20111010
  Serious: Yes (Other)
  Sender: FDA-Public Use
  Company Number: US-BAYER-200943267NA

PATIENT
  Sex: Female
  Weight: 64 kg

DRUGS (15)
  1. ULTRAM ER [Concomitant]
     Indication: BACK PAIN
     Dosage: 100 MG, QD
     Route: 048
     Dates: start: 20071101
  2. ADVIL LIQUI-GELS [Concomitant]
     Route: 048
  3. EXCEDRIN IB [Concomitant]
     Indication: MIGRAINE
     Dosage: UNK
     Dates: start: 20020101
  4. ACETAMINOPHEN [Concomitant]
     Route: 048
  5. OCELLA [Suspect]
     Indication: CONTRACEPTION
  6. ACETAMINOPHEN W/ PROPOXYPHENE HCL [Concomitant]
     Indication: PAIN
     Dosage: UNK UNK, PRN
     Route: 048
     Dates: start: 20071203
  7. HYDROCODONE BITARTRATE AND ACETAMINOPHEN [Concomitant]
     Indication: PAIN
     Dosage: UNK UNK, PRN
     Route: 048
     Dates: start: 20071123
  8. YAZ [Suspect]
     Indication: CONTRACEPTION
     Route: 048
  9. TRAMADOL [Concomitant]
     Dosage: QD-PRN
     Route: 048
  10. OCELLA [Suspect]
     Indication: PREMENSTRUAL SYNDROME
     Route: 048
     Dates: start: 20081201, end: 20090817
  11. SERTRALINE HYDROCHLORIDE [Concomitant]
     Indication: DEPRESSION
  12. ZEGERID [Concomitant]
     Dosage: UNK
     Route: 048
     Dates: start: 20071114
  13. CORTISOL [Concomitant]
     Indication: THYROID DISORDER
     Dosage: UNK
     Dates: start: 20020101
  14. YASMIN [Suspect]
     Indication: CONTRACEPTION
     Dosage: UNK UNK, QD
     Route: 048
     Dates: start: 20021001, end: 20080908
  15. SERTRALINE HYDROCHLORIDE [Concomitant]
     Indication: ANXIETY
     Dosage: 50 MG, QD
     Route: 048
     Dates: start: 20071109

REACTIONS (4)
  - PAIN [None]
  - CHOLECYSTECTOMY [None]
  - BILIARY DYSKINESIA [None]
  - GALLBLADDER CHOLESTEROLOSIS [None]
